FAERS Safety Report 8021917-5 (Version None)
Quarter: 2011Q4

REPORT INFORMATION
  Report Type: 
  Country: None (occurrence: None)
  Receive Date: 20111229
  Receipt Date: 20111219
  Transmission Date: 20120403
  Serious: Yes (Other)
  Sender: FDA-Public Use
  Company Number: US-2011-10789

PATIENT
  Age: 46 Year
  Sex: Male

DRUGS (5)
  1. ETALPHA (ALFACALCIDOL) [Concomitant]
  2. BISOPROLOL (BISOPROLOL FUMARATE) [Concomitant]
  3. OPC-41061 (TOLVAPTAN) TABLET, 15MG MILLIGRAM(S) [Suspect]
     Indication: CONGENITAL CYSTIC KIDNEY DISEASE
     Dosage: 60 MG MILLIGRAM(S), DAILY DOSE, ORAL
     Route: 048
     Dates: start: 20111019, end: 20111028
  4. AMLODIPINE [Concomitant]
  5. CALCIUM CARBONATE [Concomitant]

REACTIONS (3)
  - ANGINA PECTORIS [None]
  - DYSPNOEA [None]
  - CONDITION AGGRAVATED [None]
